FAERS Safety Report 20938646 (Version 10)
Quarter: 2024Q2

REPORT INFORMATION
  Report Type: Spontaneous
  Country: US (occurrence: US)
  Receive Date: 20220609
  Receipt Date: 20240501
  Transmission Date: 20240715
  Serious: Yes (Hospitalization, Other)
  Sender: FDA-Public Use
  Company Number: US-PFIZER INC-202200802631

PATIENT
  Age: 77 Year
  Sex: Female
  Weight: 81.179 kg

DRUGS (3)
  1. IBRANCE [Suspect]
     Active Substance: PALBOCICLIB
     Indication: Breast cancer metastatic
     Dosage: 100 MG, (ONCE A MONTH, 21 PILLS)
     Dates: end: 202311
  2. IBRANCE [Suspect]
     Active Substance: PALBOCICLIB
     Dosage: 125 MG
  3. TYLENOL [Concomitant]
     Active Substance: ACETAMINOPHEN
     Indication: Arthritis
     Dosage: UNK

REACTIONS (12)
  - Limb injury [Recovering/Resolving]
  - Peripheral embolism [Recovering/Resolving]
  - Blood iron decreased [Unknown]
  - Bone pain [Unknown]
  - Musculoskeletal discomfort [Unknown]
  - Pain in extremity [Unknown]
  - Synovial cyst [Unknown]
  - Full blood count decreased [Unknown]
  - Auditory disorder [Unknown]
  - Aneurysm [Recovering/Resolving]
  - Neoplasm progression [Unknown]
  - Somnolence [Unknown]

NARRATIVE: CASE EVENT DATE: 20230101
